FAERS Safety Report 25791621 (Version 5)
Quarter: 2025Q4

REPORT INFORMATION
  Report Type: Report from Study
  Country: JP (occurrence: JP)
  Receive Date: 20250911
  Receipt Date: 20251113
  Transmission Date: 20260118
  Serious: Yes (Other)
  Sender: ABBVIE
  Company Number: JP-TAKEDA-2024TJP012035

PATIENT
  Age: 67 Year
  Sex: Male
  Weight: 53.4 kg

DRUGS (15)
  1. LEUPROLIDE ACETATE [Suspect]
     Active Substance: LEUPROLIDE ACETATE
     Indication: Bulbospinal muscular atrophy congenital
     Dosage: 11.25 MILLIGRAM, Q3MONTHS
     Route: 058
     Dates: start: 20240509, end: 20240801
  2. LEUPROLIDE ACETATE [Suspect]
     Active Substance: LEUPROLIDE ACETATE
     Dosage: 11.25 MILLIGRAM, Q3MONTHS
     Route: 058
     Dates: start: 202506
  3. NEXVIAZYME [Concomitant]
     Active Substance: AVALGLUCOSIDASE ALFA-NGPT
     Indication: Glycogen storage disease type II
     Dosage: 1100 MILLIGRAM?INTRAVENOUS DRIP
     Route: 042
  4. AZILSARTAN KAMEDOXOMIL [Concomitant]
     Active Substance: AZILSARTAN KAMEDOXOMIL
     Indication: Hypertension
     Dosage: 20 MILLIGRAM, QD
     Route: 048
  5. FEXOFENADINE HYDROCHLORIDE [Concomitant]
     Active Substance: FEXOFENADINE HYDROCHLORIDE
     Indication: Glycogen storage disease type II
     Dosage: 60 MILLIGRAM, BID
     Route: 048
     Dates: start: 20240802
  6. FEXOFENADINE HYDROCHLORIDE [Concomitant]
     Active Substance: FEXOFENADINE HYDROCHLORIDE
     Indication: Glycogen storage disease type II
     Dosage: 60 MILLIGRAM, BID
     Route: 048
     Dates: start: 20240802
  7. PREDONINE [Concomitant]
     Active Substance: PREDNISOLONE
     Indication: Glycogen storage disease type II
     Dosage: 30 MILLIGRAM, QD
     Route: 048
     Dates: start: 20240813
  8. PREDONINE [Concomitant]
     Active Substance: PREDNISOLONE
     Indication: Glycogen storage disease type II
     Dosage: 5 MILLIGRAM
     Route: 048
     Dates: end: 20241115
  9. SOLU-MEDROL [Concomitant]
     Active Substance: METHYLPREDNISOLONE SODIUM SUCCINATE
     Indication: Glycogen storage disease type II
     Dosage: 125 MILLIGRAM?INTRAVENOUS DRIP?DOSE FORM: INJECTION
     Route: 042
  10. ACETAMINOPHEN [Concomitant]
     Active Substance: ACETAMINOPHEN
     Indication: Glycogen storage disease type II
     Dosage: 1000 MILLIGRAM?INTRAVENOUS DRIP?DOSE FORM: INJECTION
     Route: 042
  11. FAMOTIDINE [Concomitant]
     Active Substance: FAMOTIDINE
     Indication: Glycogen storage disease type II
     Dosage: 10 MILLIGRAM, BID?DOSE: ORODISPERSIBLE TABLET
     Route: 048
     Dates: start: 20240813
  12. FAMOTIDINE [Concomitant]
     Active Substance: FAMOTIDINE
     Indication: Glycogen storage disease type II
     Dosage: 10 MILLIGRAM, BID?DOSE: ORODISPERSIBLE TABLET
     Route: 048
     Dates: start: 20240813
  13. FAMOTIDINE [Concomitant]
     Active Substance: FAMOTIDINE
     Indication: Glycogen storage disease type II
     Dosage: 20 MILLIGRAM?DOSE: ORODISPERSIBLE TABLET
     Route: 048
     Dates: end: 20241115
  14. POLARAMINE [Concomitant]
     Active Substance: DEXCHLORPHENIRAMINE MALEATE
     Indication: Glycogen storage disease type II
     Dosage: 5 MILLIGRAM?DOSE FORM: INJECTION
     Route: 042
  15. AMLODIPINE [Concomitant]
     Active Substance: AMLODIPINE BESYLATE
     Indication: Hypertension
     Dosage: 2.5 MILLIGRAM, QD
     Route: 048

REACTIONS (6)
  - Injection site infection [Recovered/Resolved]
  - Skin induration [Recovered/Resolved]
  - Injection site ulcer [Recovered/Resolved]
  - Angina pectoris [Unknown]
  - Induration [Recovered/Resolved]
  - Induration [Recovered/Resolved]

NARRATIVE: CASE EVENT DATE: 20240816
